FAERS Safety Report 9744045 (Version 1)
Quarter: 2013Q4

REPORT INFORMATION
  Report Type: Spontaneous
  Country: US (occurrence: US)
  Receive Date: 20131210
  Receipt Date: 20131210
  Transmission Date: 20140711
  Serious: Yes (Other)
  Sender: FDA-Public Use
  Company Number: US-GLAXOSMITHKLINE-A1052909A

PATIENT
  Age: 64 Year
  Sex: Male

DRUGS (3)
  1. COREG CR [Suspect]
     Indication: CARDIAC FAILURE CHRONIC
     Dosage: 20MG UNKNOWN
     Route: 065
     Dates: start: 20120405
  2. LOVAZA [Suspect]
     Indication: HYPERTRIGLYCERIDAEMIA
     Dosage: 1G UNKNOWN
     Route: 065
     Dates: start: 20100304
  3. FLONASE [Concomitant]

REACTIONS (2)
  - Coronary artery bypass [Unknown]
  - Toe amputation [Unknown]
